FAERS Safety Report 8000744-9 (Version None)
Quarter: 2011Q4

REPORT INFORMATION
  Report Type: 
  Country: None (occurrence: None)
  Receive Date: 20111219
  Receipt Date: 20111209
  Transmission Date: 20120403
  Serious: Yes (Hospitalization, Other)
  Sender: FDA-Public Use
  Company Number: IPC201112-003253

PATIENT
  Age: 42 Year
  Sex: Male

DRUGS (5)
  1. ALLOPURINOL [Suspect]
  2. METHYLPREDNISOLONE [Suspect]
     Dosage: 1 GRAM FOR 3 DAYS, INTRAVENOUS
     Route: 042
  3. STEROID [Suspect]
     Dosage: ORAL
     Route: 048
  4. ANTIHYPERTENSIVE [Suspect]
     Indication: HYPERTENSION
  5. ACYCLOVIR [Suspect]
     Dosage: HALF DOSE, INTRAVENOUS
     Route: 042

REACTIONS (10)
  - CHOROIDITIS [None]
  - STEVENS-JOHNSON SYNDROME [None]
  - CD4 LYMPHOCYTES DECREASED [None]
  - BLOOD CREATININE INCREASED [None]
  - DRY EYE [None]
  - ARTERIOSCLEROTIC RETINOPATHY [None]
  - CHORIORETINAL SCAR [None]
  - CYTOMEGALOVIRUS CHORIORETINITIS [None]
  - RETINAL VASCULITIS [None]
  - IMMUNOSUPPRESSION [None]
